FAERS Safety Report 24620724 (Version 1)
Quarter: 2024Q4

REPORT INFORMATION
  Report Type: Spontaneous
  Country: CN (occurrence: CN)
  Receive Date: 20241114
  Receipt Date: 20241114
  Transmission Date: 20250114
  Serious: Yes (Hospitalization)
  Sender: PAREXEL
  Company Number: CN-SHANGHAI JUNSHI BIOSCIENCES CO., LTD.-CN2024011991

PATIENT

DRUGS (4)
  1. TORIPALIMAB [Suspect]
     Active Substance: TORIPALIMAB
     Indication: Nasopharyngeal cancer
     Dosage: 240 MG (D1), PUMP INJECTION
     Route: 041
     Dates: start: 20241016, end: 20241016
  2. PACLITAXEL [Suspect]
     Active Substance: PACLITAXEL
     Indication: Nasopharyngeal cancer
     Dosage: 200 MG (D1, D8)
     Route: 041
     Dates: start: 20241016, end: 20241017
  3. NEDAPLATIN [Concomitant]
     Active Substance: NEDAPLATIN
     Indication: Nasopharyngeal cancer
     Dosage: 40 MG (D2-D4)
     Dates: start: 20241016
  4. SODIUM CHLORIDE [Concomitant]
     Active Substance: SODIUM CHLORIDE
     Indication: Medication dilution
     Dosage: 100 ML (D1, D8)
     Route: 041
     Dates: start: 20241016

REACTIONS (1)
  - Myelosuppression [Recovering/Resolving]

NARRATIVE: CASE EVENT DATE: 20241021
